FAERS Safety Report 5029212-3 (Version None)
Quarter: 2006Q2

REPORT INFORMATION
  Report Type: 
  Country: None (occurrence: None)
  Receive Date: 20060613
  Receipt Date: 20060602
  Transmission Date: 20061013
  Serious: Yes (Hospitalization)
  Sender: FDA-Public Use
  Company Number: 2006070908

PATIENT
  Age: 40 Year
  Sex: Male

DRUGS (5)
  1. ATORVASTATIN CALCIUM [Suspect]
     Indication: ILL-DEFINED DISORDER
     Dosage: 80 MG (80 MG, 1 IN 1 D), ORAL
     Route: 048
     Dates: start: 20060101
  2. PLAVIX [Concomitant]
  3. ASPIRIN [Concomitant]
  4. AMARYL [Concomitant]
  5. GLUCOPHAGE [Concomitant]

REACTIONS (2)
  - BONE PAIN [None]
  - NECK PAIN [None]
